FAERS Safety Report 15104261 (Version 2)
Quarter: 2020Q3

REPORT INFORMATION
  Report Type: Spontaneous
  Country: US (occurrence: US)
  Receive Date: 20180703
  Receipt Date: 20200901
  Transmission Date: 20201102
  Serious: Yes (Hospitalization, Other)
  Sender: FDA-Public Use
  Company Number: US-SA-2018SA164874

PATIENT

DRUGS (1)
  1. ZANTAC 150 (RANITIDINE HYDROCHLORIDE) [Suspect]
     Active Substance: RANITIDINE HYDROCHLORIDE
     Dosage: 150 MG, QD
     Route: 065
     Dates: end: 201712

REACTIONS (8)
  - Skin ulcer [Unknown]
  - Skin infection [Unknown]
  - Rash [Unknown]
  - Haemorrhage [Unknown]
  - Scar [Unknown]
  - Blister [Unknown]
  - Polyp [Unknown]
  - Drug hypersensitivity [Unknown]
